FAERS Safety Report 7736158-6 (Version None)
Quarter: 2011Q3

REPORT INFORMATION
  Report Type: 
  Country: None (occurrence: None)
  Receive Date: 20110908
  Receipt Date: 20110831
  Transmission Date: 20111222
  Serious: Yes (Death)
  Sender: FDA-Public Use
  Company Number: US-ELI_LILLY_AND_COMPANY-US201109000527

PATIENT
  Age: 56 Year
  Sex: Male

DRUGS (9)
  1. LORTAB [Concomitant]
     Dosage: 10 MG, UNK
  2. ATENOLOL [Concomitant]
  3. GLIPIZIDE [Concomitant]
  4. EFFIENT [Suspect]
     Dosage: 10 MG, UNKNOWN
     Dates: start: 20110827, end: 20110827
  5. ZANTAC [Concomitant]
  6. PLAVIX [Concomitant]
     Dosage: 75 MG, UNK
  7. ASPIRIN [Concomitant]
     Dosage: 325 MG, UNK
  8. EFFIENT [Suspect]
     Indication: STENT PLACEMENT
     Dosage: 60 MG, LOADING DOSE
     Dates: start: 20110826
  9. LIBRIUM [Concomitant]
     Dosage: 15 MG, TID

REACTIONS (1)
  - MYOCARDIAL INFARCTION [None]
